FAERS Safety Report 7074976-0 (Version None)
Quarter: 2010Q4

REPORT INFORMATION
  Report Type: 
  Country: None (occurrence: None)
  Receive Date: 20101029
  Receipt Date: 20100519
  Transmission Date: 20110411
  Serious: No
  Sender: FDA-Public Use
  Company Number: US-WYE-H13110810

PATIENT
  Age: 54 Year
  Sex: Female
  Weight: 63.56 kg

DRUGS (2)
  1. ADVIL PM [Suspect]
     Indication: PAIN
     Route: 048
     Dates: start: 20100118, end: 20100118
  2. ADVIL PM [Suspect]
     Indication: INSOMNIA

REACTIONS (3)
  - DRUG INEFFECTIVE [None]
  - FEELING ABNORMAL [None]
  - HEADACHE [None]
